FAERS Safety Report 8875666 (Version 1)
Quarter: 2012Q4

REPORT INFORMATION
  Report Type: 
  Country: US (occurrence: US)
  Receive Date: 20121023
  Receipt Date: 20121023
  Transmission Date: 20130627
  Serious: Yes (Life-Threatening)
  Sender: FDA-Public Use
  Company Number: PHEH2012US020634

PATIENT
  Sex: Male

DRUGS (10)
  1. EXELON PATCH [Suspect]
     Route: 062
  2. MORPHINE [Suspect]
  3. TIZANIDINE [Concomitant]
  4. DILANTIN [Concomitant]
  5. AMITRIPTYLINE [Concomitant]
     Indication: DEPRESSION
  6. PENTAZOCINE [Concomitant]
  7. DAFLOXEN F [Concomitant]
  8. LIDODERM [Concomitant]
  9. SPIRIVA [Concomitant]
  10. ADVAIR [Concomitant]

REACTIONS (6)
  - Apparent death [Unknown]
  - Lung disorder [Unknown]
  - Gastrointestinal disorder [Unknown]
  - Nervous system disorder [Unknown]
  - Weight increased [Unknown]
  - General physical health deterioration [Unknown]
